FAERS Safety Report 14954222 (Version 1)
Quarter: 2018Q2

REPORT INFORMATION
  Report Type: Spontaneous
  Country: ES (occurrence: ES)
  Receive Date: 20180530
  Receipt Date: 20180530
  Transmission Date: 20180711
  Serious: Yes (Hospitalization, Other)
  Sender: FDA-Public Use
  Company Number: ES-MYLANLABS-2018M1036031

PATIENT
  Age: 31 Year
  Sex: Female

DRUGS (2)
  1. LIDOCAINE. [Suspect]
     Active Substance: LIDOCAINE
     Indication: EPIDURAL ANAESTHESIA
     Dosage: RECEIVED BOLUS THROUGH EPIDURAL CATHETER
     Route: 008
  2. BUPIVACAINE. [Suspect]
     Active Substance: BUPIVACAINE
     Indication: EPIDURAL ANAESTHESIA
     Dosage: RECEIVED BOLUS THROUGH EPIDURAL CATHETER
     Route: 008

REACTIONS (3)
  - Maternal exposure during pregnancy [Unknown]
  - Horner^s syndrome [Recovering/Resolving]
  - Harlequin syndrome [Recovering/Resolving]
